FAERS Safety Report 10703962 (Version 1)
Quarter: 2015Q1

REPORT INFORMATION
  Report Type: Spontaneous
  Country: DE (occurrence: DE)
  Receive Date: 20150112
  Receipt Date: 20150112
  Transmission Date: 20150721
  Serious: Yes (Hospitalization, Disabling)
  Sender: FDA-Public Use
  Company Number: DE-BAUSCH-BL-2014-011798

PATIENT
  Age: 4 Month
  Sex: Female
  Weight: 6.6 kg

DRUGS (1)
  1. FLOXAL AUGENTROPFEN [Suspect]
     Active Substance: OFLOXACIN
     Indication: CONJUNCTIVITIS
     Dates: start: 20140730, end: 20140805

REACTIONS (1)
  - Corneal opacity [Not Recovered/Not Resolved]

NARRATIVE: CASE EVENT DATE: 20140805
